FAERS Safety Report 5474029-9 (Version None)
Quarter: 2007Q4

REPORT INFORMATION
  Report Type: 
  Country: None (occurrence: None)
  Receive Date: 20071002
  Receipt Date: 20070919
  Transmission Date: 20080405
  Serious: Yes (Other)
  Sender: FDA-Public Use
  Company Number: PHBS2007DE15546

PATIENT
  Age: 89 Year
  Sex: Female

DRUGS (2)
  1. IMATINIB [Suspect]
     Indication: GASTROINTESTINAL STROMAL TUMOUR
     Dosage: 400 MG/D
     Route: 065
  2. DEXAMETHASONE 0.5MG TAB [Concomitant]
     Route: 065

REACTIONS (8)
  - ANGIOCENTRIC LYMPHOMA [None]
  - DYSPNOEA [None]
  - EPSTEIN-BARR VIRUS TEST POSITIVE [None]
  - LEUKOPENIA [None]
  - LYMPHOPENIA [None]
  - NECROSIS [None]
  - NEOPLASM PROGRESSION [None]
  - SUBCUTANEOUS NODULE [None]
